FAERS Safety Report 6140831-3 (Version None)
Quarter: 2009Q2

REPORT INFORMATION
  Report Type: 
  Country: None (occurrence: None)
  Receive Date: 20090401
  Receipt Date: 20090401
  Transmission Date: 20091009
  Serious: Yes (Hospitalization)
  Sender: FDA-Public Use
  Company Number: None

PATIENT
  Sex: Female
  Weight: 73.2 kg

DRUGS (2)
  1. CISPLATIN [Suspect]
     Dosage: 142 MG
     Dates: end: 20090309
  2. TAXOTERE [Suspect]
     Dosage: 142 MG
     Dates: end: 20060309

REACTIONS (6)
  - DEHYDRATION [None]
  - DIARRHOEA [None]
  - HYPOKALAEMIA [None]
  - NAUSEA [None]
  - NEUTROPENIA [None]
  - PYREXIA [None]
